FAERS Safety Report 8469346-4 (Version None)
Quarter: 2012Q2

REPORT INFORMATION
  Report Type: 
  Country: None (occurrence: None)
  Receive Date: 20120626
  Receipt Date: 20120614
  Transmission Date: 20120825
  Serious: Yes (Death, Other)
  Sender: FDA-Public Use
  Company Number: PT-ROCHE-1079390

PATIENT
  Sex: Female
  Weight: 52 kg

DRUGS (9)
  1. LEUCOVORIN CALCIUM [Concomitant]
  2. DIHYDROCODEIN [Concomitant]
     Dates: start: 20051227
  3. METOCLOPRAMIDE [Concomitant]
     Dates: start: 20050126
  4. OXALIPLATIN [Concomitant]
  5. CHLORPROMAZINE HCL [Concomitant]
     Dates: start: 20050126
  6. CENTRUM [Concomitant]
     Dates: start: 20050126
  7. AVASTIN [Suspect]
     Indication: PRODUCT USED FOR UNKNOWN INDICATION
  8. FLUOROURACIL [Concomitant]
  9. AMITRIPTYLINE HCL [Concomitant]
     Dates: start: 20050126

REACTIONS (5)
  - METASTASES TO BLADDER [None]
  - METASTASES TO LYMPH NODES [None]
  - COLON CANCER [None]
  - DEATH [None]
  - METASTASES TO BONE [None]
